FAERS Safety Report 19448945 (Version 1)
Quarter: 2021Q2

REPORT INFORMATION
  Report Type: Spontaneous
  Country: CO (occurrence: CO)
  Receive Date: 20210622
  Receipt Date: 20210622
  Transmission Date: 20210717
  Serious: Yes (Hospitalization)
  Sender: FDA-Public Use
  Company Number: CO-HRARD-2021000426

PATIENT
  Age: 60 Year
  Sex: Male

DRUGS (1)
  1. MITOTANE [Suspect]
     Active Substance: MITOTANE
     Route: 048
     Dates: start: 20210320

REACTIONS (3)
  - COVID-19 [Not Recovered/Not Resolved]
  - Headache [Recovered/Resolved]
  - Vomiting [Recovered/Resolved]

NARRATIVE: CASE EVENT DATE: 20210520
